FAERS Safety Report 5082786-9 (Version None)
Quarter: 2006Q3

REPORT INFORMATION
  Report Type: 
  Country: None (occurrence: None)
  Receive Date: 20060817
  Receipt Date: 20060810
  Transmission Date: 20061208
  Serious: Yes (Death)
  Sender: FDA-Public Use
  Company Number: CA-NOVOPROD-256060

PATIENT
  Sex: Male

DRUGS (1)
  1. NIASTASE [Suspect]
     Indication: HAEMORRHAGE INTRACRANIAL
     Dosage: 40 UG/KG

REACTIONS (1)
  - HYDROCEPHALUS [None]
